APPROVED DRUG PRODUCT: ANDROGEL
Active Ingredient: TESTOSTERONE
Strength: 1.62% (20.25MG/1.25GM ACTUATION)
Dosage Form/Route: GEL, METERED;TRANSDERMAL
Application: N022309 | Product #001 | TE Code: AB
Applicant: BESINS HEALTHCARE IRELAND LTD
Approved: Apr 29, 2011 | RLD: Yes | RS: Yes | Type: RX

PATENTS:
Patent 8466138 | Expires: Oct 12, 2026
Patent 8466137 | Expires: Oct 12, 2026
Patent 8741881 | Expires: Oct 12, 2026
Patent 8729057 | Expires: Oct 12, 2026
Patent 8759329 | Expires: Oct 12, 2026
Patent 8754070 | Expires: Oct 12, 2026
Patent 8466136 | Expires: Oct 12, 2026
Patent 8486925 | Expires: Oct 12, 2026